FAERS Safety Report 16946946 (Version 2)
Quarter: 2019Q4

REPORT INFORMATION
  Report Type: Spontaneous
  Country: US (occurrence: US)
  Receive Date: 20191022
  Receipt Date: 20191112
  Transmission Date: 20200122
  Serious: No
  Sender: FDA-Public Use
  Company Number: US-009507513-1910USA010923

PATIENT
  Sex: Female

DRUGS (14)
  1. FOLLISTIM AQ [Suspect]
     Active Substance: FOLLITROPIN
     Indication: INFERTILITY FEMALE
     Dosage: 300-450 UNITS, DAILY (10-14 DAYS)
     Route: 058
     Dates: start: 20170213
  2. LEVOTHYROXINE SODIUM. [Concomitant]
     Active Substance: LEVOTHYROXINE SODIUM
  3. PREDNISONE. [Concomitant]
     Active Substance: PREDNISONE
  4. PROGESTERONE. [Concomitant]
     Active Substance: PROGESTERONE
  5. ESTRADIOL. [Concomitant]
     Active Substance: ESTRADIOL
  6. DICLOXACILLIN [Concomitant]
     Active Substance: DICLOXACILLIN
  7. GANIRELIX ACETATE INJECTION [Suspect]
     Active Substance: GANIRELIX ACETATE
     Indication: INFERTILITY FEMALE
     Dosage: 250 MICROGRAM, DAILY
     Route: 058
     Dates: start: 20170213
  8. MENOPUR [Concomitant]
     Active Substance: FOLLITROPIN\LUTEINIZING HORMONE
  9. PUREGON PEN [DEVICE] [Suspect]
     Active Substance: DEVICE
  10. AZITHROMYCIN ANHYDROUS. [Concomitant]
     Active Substance: AZITHROMYCIN ANHYDROUS
  11. LEUPROLIDE [Concomitant]
     Active Substance: LEUPROLIDE
  12. GONADOTROPIN, CHORIONIC [Concomitant]
     Active Substance: CHORIOGONADOTROPIN ALFA
  13. METHYLPRED ORAL [Concomitant]
  14. AMOX TR-K CLV [Concomitant]
     Active Substance: AMOXICILLIN\CLAVULANATE POTASSIUM

REACTIONS (1)
  - Injection site pain [Unknown]
